FAERS Safety Report 9206326 (Version 1)
Quarter: 2013Q2

REPORT INFORMATION
  Report Type: Spontaneous
  Country: US (occurrence: US)
  Receive Date: 20130403
  Receipt Date: 20130403
  Transmission Date: 20140414
  Serious: Yes (Hospitalization, Other)
  Sender: FDA-Public Use
  Company Number: PHEH2013US007407

PATIENT
  Sex: Female

DRUGS (9)
  1. AFINITOR [Suspect]
     Dosage: 5 MG, UNK
     Dates: start: 201211
  2. SANDOSTATIN [Concomitant]
  3. COUMADINE [Concomitant]
  4. LEVAQUIN [Concomitant]
  5. LOVENOX [Concomitant]
  6. VITAMIN K [Concomitant]
  7. FLAGYL [Concomitant]
  8. CLINDAMYCIN [Concomitant]
  9. CORTISONE [Concomitant]

REACTIONS (8)
  - Blood glucose increased [Recovered/Resolved]
  - Pyrexia [Unknown]
  - Spinal osteoarthritis [Unknown]
  - Concomitant disease aggravated [Unknown]
  - Nail disorder [Unknown]
  - Malaise [Unknown]
  - Sluggishness [Unknown]
  - Fatigue [Unknown]
